FAERS Safety Report 17144639 (Version 1)
Quarter: 2019Q4

REPORT INFORMATION
  Report Type: Spontaneous
  Country: US (occurrence: US)
  Receive Date: 20191212
  Receipt Date: 20191212
  Transmission Date: 20200122
  Serious: No
  Sender: FDA-Public Use
  Company Number: US-SLATE RUN PHARMACEUTICALS-SLTR-AE-19-112

PATIENT
  Age: 43 Year
  Sex: Male

DRUGS (1)
  1. 70436-011-02 BUPROPION HYDROCHLORIDE ER TABLET USP (XL) 300 MG [Suspect]
     Active Substance: BUPROPION HYDROCHLORIDE
     Indication: DEPRESSION
     Route: 048

REACTIONS (1)
  - Drug ineffective [Recovered/Resolved]
